FAERS Safety Report 4641092-4 (Version None)
Quarter: 2005Q2

REPORT INFORMATION
  Report Type: 
  Country: None (occurrence: None)
  Receive Date: 20050419
  Receipt Date: 20050419
  Transmission Date: 20051028
  Serious: Yes (Death)
  Sender: FDA-Public Use
  Company Number: None

PATIENT
  Age: 64 Year
  Sex: Female
  Weight: 77.5651 kg

DRUGS (7)
  1. AVASTIN [Suspect]
     Indication: COLORECTAL CANCER METASTATIC
     Dosage: 366 MG IV Q 2 WKS
     Route: 042
     Dates: start: 20041201
  2. AVASTIN [Suspect]
     Indication: COLORECTAL CANCER METASTATIC
     Dosage: 366 MG IV Q 2 WKS
     Route: 042
     Dates: start: 20041215
  3. AVASTIN [Suspect]
     Indication: COLORECTAL CANCER METASTATIC
     Dosage: 366 MG IV Q 2 WKS
     Route: 042
     Dates: start: 20050105
  4. AVASTIN [Suspect]
     Indication: COLORECTAL CANCER METASTATIC
     Dosage: 366 MG IV Q 2 WKS
     Route: 042
     Dates: start: 20050119
  5. AVASTIN [Suspect]
     Indication: COLORECTAL CANCER METASTATIC
     Dosage: 366 MG IV Q 2 WKS
     Route: 042
     Dates: start: 20050202
  6. AVASTIN [Suspect]
     Indication: COLORECTAL CANCER METASTATIC
     Dosage: 366 MG IV Q 2 WKS
     Route: 042
     Dates: start: 20050216
  7. AVASTIN [Suspect]
     Indication: COLORECTAL CANCER METASTATIC
     Dosage: 366 MG IV Q 2 WKS
     Route: 042
     Dates: start: 20050302

REACTIONS (2)
  - INFECTION [None]
  - NECROSIS [None]
